FAERS Safety Report 7324352-8 (Version None)
Quarter: 2011Q1

REPORT INFORMATION
  Report Type: 
  Country: None (occurrence: None)
  Receive Date: 20110202
  Receipt Date: 20101216
  Transmission Date: 20110831
  Serious: No
  Sender: FDA-Public Use
  Company Number: 2010-16161

PATIENT
  Age: 68 Year
  Sex: Male
  Weight: 82.5 kg

DRUGS (1)
  1. RAPAFLO [Suspect]
     Indication: BLADDER DISORDER
     Dosage: 8 MG, DAILY, ORAL
     Route: 048
     Dates: start: 20101210

REACTIONS (1)
  - RETROGRADE EJACULATION [None]
